FAERS Safety Report 19467171 (Version 1)
Quarter: 2021Q2

REPORT INFORMATION
  Report Type: Report from Study
  Country: BR (occurrence: BR)
  Receive Date: 20210628
  Receipt Date: 20210628
  Transmission Date: 20210717
  Serious: Yes (Death, Hospitalization)
  Sender: FDA-Public Use
  Company Number: BR-JNJFOC-20210647477

PATIENT
  Sex: Male

DRUGS (1)
  1. REMICADE [Suspect]
     Active Substance: INFLIXIMAB
     Indication: PRODUCT USED FOR UNKNOWN INDICATION
     Dosage: DOSE: 4 AMPOULE?VIALS OF 100MG?END DATE: FEBRUARY (YEAR UNSPECIFIED)
     Route: 042
     Dates: start: 20181121

REACTIONS (1)
  - COVID-19 [Fatal]
